FAERS Safety Report 8923059 (Version 1)
Quarter: 2012Q4

REPORT INFORMATION
  Report Type: Spontaneous
  Country: IT (occurrence: None)
  Receive Date: 20121109
  Receipt Date: 20121109
  Transmission Date: 20130627
  Serious: Yes (Other)
  Sender: FDA-Public Use
  Company Number: 2011S1000636

PATIENT
  Age: 26 Year
  Sex: Male

DRUGS (1)
  1. CUBICIN [Suspect]
     Indication: INFECTION
     Dates: start: 20110504

REACTIONS (3)
  - Pyrexia [None]
  - Blood immunoglobulin E increased [None]
  - Eosinophilia [None]
